FAERS Safety Report 10602269 (Version 2)
Quarter: 2014Q4

REPORT INFORMATION
  Report Type: Spontaneous
  Country: NL (occurrence: NL)
  Receive Date: 20141124
  Receipt Date: 20141209
  Transmission Date: 20150529
  Serious: Yes (Hospitalization)
  Sender: FDA-Public Use
  Company Number: NL-PFIZER INC-2014318900

PATIENT
  Sex: Female

DRUGS (1)
  1. IBUPROFEN. [Suspect]
     Active Substance: IBUPROFEN
     Indication: PAIN
     Dosage: 1,5 TABLET, 200 MG, AS NEEDED

REACTIONS (8)
  - Hypotension [Unknown]
  - Foot fracture [Unknown]
  - Hypersensitivity [Unknown]
  - Pruritus generalised [Unknown]
  - Fall [Unknown]
  - Cervical vertebral fracture [Unknown]
  - Swelling [Unknown]
  - Erythema [Unknown]
